FAERS Safety Report 7989009-9 (Version None)
Quarter: 2011Q4

REPORT INFORMATION
  Report Type: 
  Country: None (occurrence: None)
  Receive Date: 20111219
  Receipt Date: 20111208
  Transmission Date: 20120403
  Serious: Yes (Life-Threatening, Other)
  Sender: FDA-Public Use
  Company Number: JP-GENZYME-THYM-1002979

PATIENT
  Sex: Male
  Weight: 36 kg

DRUGS (17)
  1. MICAFUNGIN SODIUM [Concomitant]
     Indication: INFECTION PROPHYLAXIS
     Dosage: UNK
     Dates: start: 20110527, end: 20110620
  2. METHOTREXATE [Concomitant]
     Indication: PROPHYLAXIS AGAINST GRAFT VERSUS HOST DISEASE
     Dosage: UNK
     Dates: start: 20110604, end: 20110614
  3. URSODIOL [Concomitant]
     Indication: PROPHYLAXIS
     Dosage: UNK
     Dates: start: 20110527, end: 20110601
  4. MELPHALAN HYDROCHLORIDE [Concomitant]
     Indication: ADRENOLEUKODYSTROPHY
     Dosage: UNK
     Dates: start: 20110530
  5. CYCLOSPORINE [Concomitant]
     Dosage: UNK
     Dates: start: 20110628
  6. FAMOTIDINE [Concomitant]
     Indication: PROPHYLAXIS
     Dosage: UNK
     Dates: start: 20110527
  7. THYMOGLOBULIN [Suspect]
     Indication: BONE MARROW CONDITIONING REGIMEN
     Dosage: 85 MG, QD
     Route: 042
     Dates: start: 20110531, end: 20110601
  8. FLUDARABINE PHOSPHATE [Concomitant]
     Indication: ADRENOLEUKODYSTROPHY
     Dosage: UNK
     Dates: start: 20110527, end: 20110531
  9. ACYCLOVIR [Concomitant]
     Indication: ANTIVIRAL PROPHYLAXIS
     Dosage: UNK
     Dates: start: 20110602, end: 20110622
  10. ACYCLOVIR [Concomitant]
     Dosage: UNK
     Dates: start: 20110621, end: 20110708
  11. TACROLIMUS [Concomitant]
     Indication: PROPHYLAXIS AGAINST GRAFT VERSUS HOST DISEASE
     Dosage: UNK
     Dates: start: 20110602, end: 20110606
  12. HYDROCORTISONE SODIUM SUCCINATE [Concomitant]
     Indication: PREMEDICATION
     Dosage: UNK
     Dates: start: 20110530, end: 20110621
  13. URSODIOL [Concomitant]
     Dosage: UNK
     Dates: start: 20110620, end: 20110812
  14. CYCLOSPORINE [Concomitant]
     Indication: PROPHYLAXIS AGAINST GRAFT VERSUS HOST DISEASE
     Dosage: UNK
     Dates: start: 20110607, end: 20110627
  15. FILGRASTIM [Concomitant]
     Indication: ADRENOLEUKODYSTROPHY
     Dosage: UNK
     Dates: start: 20110608, end: 20110625
  16. SULFAMETHOPRIM [Concomitant]
     Indication: INFECTION PROPHYLAXIS
     Dosage: UNK
     Dates: start: 20110702
  17. ACYCLOVIR [Concomitant]
     Dosage: UNK
     Dates: start: 20110527, end: 20110601

REACTIONS (5)
  - CHRONIC GRAFT VERSUS HOST DISEASE [None]
  - CYTOMEGALOVIRUS INFECTION [None]
  - TOXIC ENCEPHALOPATHY [None]
  - INFECTION [None]
  - GRAFT VERSUS HOST DISEASE IN SKIN [None]
